APPROVED DRUG PRODUCT: PENETREX
Active Ingredient: ENOXACIN
Strength: 200MG
Dosage Form/Route: TABLET;ORAL
Application: N019616 | Product #004
Applicant: SANOFI AVENTIS US LLC
Approved: Dec 31, 1991 | RLD: No | RS: No | Type: DISCN